FAERS Safety Report 10171992 (Version 2)
Quarter: 2014Q2

REPORT INFORMATION
  Report Type: Spontaneous
  Country: US (occurrence: US)
  Receive Date: 20140515
  Receipt Date: 20140617
  Transmission Date: 20141212
  Serious: No
  Sender: FDA-Public Use
  Company Number: US-PFIZER INC-2014128348

PATIENT
  Sex: Male

DRUGS (4)
  1. ATORVASTATIN CALCIUM [Suspect]
     Dosage: 80 MG, 1X/DAY
     Dates: start: 2013
  2. ATORVASTATIN CALCIUM [Suspect]
     Dosage: TWO OF 40 MG, UNK
  3. ADVAIR DISKUS [Concomitant]
     Dosage: UNK
  4. TRIBENZOR [Concomitant]
     Dosage: 5/20/12.5MG

REACTIONS (2)
  - Dysphagia [Recovered/Resolved]
  - Foreign body [Recovered/Resolved]
